FAERS Safety Report 4785982-0 (Version None)
Quarter: 2005Q3

REPORT INFORMATION
  Report Type: 
  Country: None (occurrence: None)
  Receive Date: 20050930
  Receipt Date: 20050930
  Transmission Date: 20060218
  Serious: Yes (Other)
  Sender: FDA-Public Use
  Company Number: None

PATIENT
  Sex: Male
  Weight: 85.2762 kg

DRUGS (1)
  1. ZOLOFT [Suspect]
     Indication: DEPRESSION
     Dosage: 1 DAILY OROPHARING
     Route: 049

REACTIONS (8)
  - AMNESIA [None]
  - ANXIETY [None]
  - CHILLS [None]
  - DISSOCIATION [None]
  - HYPERHIDROSIS [None]
  - NAUSEA [None]
  - PARANOIA [None]
  - SEXUAL DYSFUNCTION [None]
